FAERS Safety Report 10678616 (Version 1)
Quarter: 2014Q4

REPORT INFORMATION
  Report Type: Spontaneous
  Country: IT (occurrence: IT)
  Receive Date: 20141229
  Receipt Date: 20141229
  Transmission Date: 20150529
  Serious: Yes (Hospitalization)
  Sender: FDA-Public Use
  Company Number: IT-TEVA-530854ISR

PATIENT
  Age: 56 Year
  Sex: Female

DRUGS (4)
  1. ARIPIRAZOLO [Concomitant]
  2. SERTRALINE [Concomitant]
     Active Substance: SERTRALINE HYDROCHLORIDE
  3. QUETIAPINA TEVA 300 MG [Concomitant]
  4. QUETIAPINA TEVA ITALIA 300 MG [Suspect]
     Active Substance: QUETIAPINE
     Route: 048
     Dates: start: 20140731, end: 20140731

REACTIONS (2)
  - Drug abuse [Recovering/Resolving]
  - Sopor [Recovering/Resolving]

NARRATIVE: CASE EVENT DATE: 20140731
